FAERS Safety Report 7992362-3 (Version None)
Quarter: 2011Q4

REPORT INFORMATION
  Report Type: 
  Country: None (occurrence: None)
  Receive Date: 20111219
  Receipt Date: 20110808
  Transmission Date: 20120403
  Serious: No
  Sender: FDA-Public Use
  Company Number: US-ASTRAZENECA-2011SE47230

PATIENT
  Age: 64 Year
  Sex: Male
  Weight: 78.5 kg

DRUGS (2)
  1. CRESTOR [Suspect]
     Route: 048
  2. NIACIN [Concomitant]

REACTIONS (2)
  - MUSCLE ATROPHY [None]
  - WEIGHT DECREASED [None]
